FAERS Safety Report 18021292 (Version 2)
Quarter: 2020Q3

REPORT INFORMATION
  Report Type: Report from Study
  Country: None (occurrence: IL)
  Receive Date: 20200714
  Receipt Date: 20200716
  Transmission Date: 20201103
  Serious: Yes (Hospitalization)
  Sender: FDA-Public Use
  Company Number: IL-ABBVIE-20K-082-3476668-00

PATIENT
  Age: 81 Year
  Sex: Male
  Weight: 69 kg

DRUGS (11)
  1. BASAGLAR [Concomitant]
     Active Substance: INSULIN GLARGINE
     Indication: DIABETES MELLITUS
     Dates: start: 20200506
  2. AZACITIDINE. [Suspect]
     Active Substance: AZACITIDINE
     Route: 058
     Dates: start: 20200601, end: 20200609
  3. VENCLEXTA [Suspect]
     Active Substance: VENETOCLAX
     Indication: PRODUCT USED FOR UNKNOWN INDICATION
     Dosage: TYPE OF CHANGE TREATMENT? RAMP UP
     Route: 048
     Dates: start: 20200426, end: 20200426
  4. HYDREA [Suspect]
     Active Substance: HYDROXYUREA
     Indication: ACUTE MYELOID LEUKAEMIA
     Route: 048
     Dates: start: 20200421, end: 20200426
  5. RIPALID [Concomitant]
     Indication: DIABETES MELLITUS
     Dates: start: 20200324
  6. AZACITIDINE. [Suspect]
     Active Substance: AZACITIDINE
     Indication: PRODUCT USED FOR UNKNOWN INDICATION
     Route: 058
     Dates: start: 20200426, end: 20200502
  7. SIMVASTATIN. [Concomitant]
     Active Substance: SIMVASTATIN
     Indication: HYPERLIPIDAEMIA
     Dates: start: 20081027
  8. VENCLEXTA [Suspect]
     Active Substance: VENETOCLAX
     Dosage: TYPE OF CHANGE TREATMENT? RAMP UP
     Route: 048
     Dates: start: 20200427, end: 20200427
  9. ALLORIL [Concomitant]
     Active Substance: ALLOPURINOL
     Indication: PROPHYLAXIS
     Dates: start: 20200421
  10. VENCLEXTA [Suspect]
     Active Substance: VENETOCLAX
     Dosage: TYPE OF CHANGE TREATMENT? INTERRUPTION
     Route: 048
     Dates: start: 20200428, end: 20200524
  11. VENCLEXTA [Suspect]
     Active Substance: VENETOCLAX
     Dosage: TYPE OF CHANGE TREATMENT? DISCONITNUED
     Route: 048
     Dates: start: 20200601, end: 20200621

REACTIONS (1)
  - Constipation [Recovered/Resolved]

NARRATIVE: CASE EVENT DATE: 20200616
